FAERS Safety Report 17571445 (Version 1)
Quarter: 2020Q1

REPORT INFORMATION
  Report Type: Spontaneous
  Country: CA (occurrence: CA)
  Receive Date: 20200323
  Receipt Date: 20200323
  Transmission Date: 20200409
  Serious: Yes (Other)
  Sender: FDA-Public Use
  Company Number: NVSC2020CA079731

PATIENT
  Sex: Male

DRUGS (10)
  1. HYDROXYCHLOROQUINE SULPHATE [Concomitant]
     Active Substance: HYDROXYCHLOROQUINE
     Dosage: 200 MG, Q2W
     Route: 065
  2. METHOTREXATE. [Suspect]
     Active Substance: METHOTREXATE
     Indication: PSORIATIC ARTHROPATHY
     Dosage: 20 MG, UNKNOWN
     Route: 048
  3. ORENCIA [Suspect]
     Active Substance: ABATACEPT
     Indication: PSORIATIC ARTHROPATHY
     Dosage: 125 MG, UNKNOWN
     Route: 065
  4. SULFASALAZINE. [Concomitant]
     Active Substance: SULFASALAZINE
     Indication: PRODUCT USED FOR UNKNOWN INDICATION
     Dosage: UNK
     Route: 065
  5. SULFASALAZINE. [Concomitant]
     Active Substance: SULFASALAZINE
     Dosage: 1 OT, BID
     Route: 065
  6. ENBREL [Suspect]
     Active Substance: ETANERCEPT
     Indication: PSORIATIC ARTHROPATHY
     Dosage: 50 MG, UNKNOWN
     Route: 065
  7. APREMILAST [Suspect]
     Active Substance: APREMILAST
     Indication: PSORIATIC ARTHROPATHY
     Dosage: 2 DF, QD
     Route: 048
  8. HYDROXYCHLOROQUINE SULPHATE [Concomitant]
     Active Substance: HYDROXYCHLOROQUINE
     Indication: PRODUCT USED FOR UNKNOWN INDICATION
     Dosage: UNK
     Route: 065
  9. HYDROXYCHLOROQUINE SULPHATE [Concomitant]
     Active Substance: HYDROXYCHLOROQUINE
     Dosage: 200 MG, BID
     Route: 065
  10. COSENTYX [Suspect]
     Active Substance: SECUKINUMAB
     Indication: PSORIATIC ARTHROPATHY
     Dosage: 150 MG, UNKNOWN
     Route: 065

REACTIONS (10)
  - Diarrhoea [Unknown]
  - Off label use [Unknown]
  - Drug intolerance [Unknown]
  - Therapeutic product effect decreased [Unknown]
  - Nausea [Unknown]
  - Bronchitis [Unknown]
  - Vomiting [Unknown]
  - Drug ineffective [Unknown]
  - C-reactive protein increased [Unknown]
  - Leukopenia [Unknown]
